FAERS Safety Report 24658971 (Version 1)
Quarter: 2024Q4

REPORT INFORMATION
  Report Type: Spontaneous
  Country: US (occurrence: None)
  Receive Date: 20241122
  Receipt Date: 20241122
  Transmission Date: 20250115
  Serious: Yes (Other)
  Sender: Public
  Company Number: None

PATIENT
  Age: 19 Year
  Sex: Female

DRUGS (1)
  1. NUVARING [Suspect]
     Active Substance: ETHINYL ESTRADIOL\ETONOGESTREL
     Indication: Contraception
     Dosage: FREQUENCY : MONTHLY;?
     Route: 067
     Dates: start: 20240817, end: 20241122

REACTIONS (1)
  - Rash [None]

NARRATIVE: CASE EVENT DATE: 20241007
